FAERS Safety Report 7307969-6 (Version None)
Quarter: 2011Q1

REPORT INFORMATION
  Report Type: 
  Country: None (occurrence: None)
  Receive Date: 20110223
  Receipt Date: 20110210
  Transmission Date: 20110831
  Serious: Yes (Hospitalization)
  Sender: FDA-Public Use
  Company Number: JP-BAYER-2011-011585

PATIENT
  Sex: Male
  Weight: 74 kg

DRUGS (6)
  1. BAYLOTENSIN [Concomitant]
     Indication: HYPERTENSION
     Dosage: DAILY DOSE 10 MG
     Route: 048
  2. SORAFENIB (RAF KINASE INHIBITOR) [Suspect]
     Indication: HEPATIC NEOPLASM MALIGNANT
     Dosage: 400 MG, BID
     Route: 048
     Dates: start: 20090609, end: 20100329
  3. MEVALOTIN [Concomitant]
     Dosage: DAILY DOSE 5 MG
     Route: 048
  4. GLUCOBAY [Concomitant]
     Dosage: DAILY DOSE 150 MG
     Route: 048
  5. ACTOS [Concomitant]
     Dosage: DAILY DOSE 30 MG
     Route: 048
  6. AMARYL [Concomitant]
     Dosage: DAILY DOSE 6 MG
     Route: 048

REACTIONS (4)
  - LIPASE INCREASED [None]
  - BLOOD AMYLASE INCREASED [None]
  - HYPERTENSION [None]
  - CEREBRAL INFARCTION [None]
